FAERS Safety Report 8357598-0 (Version None)
Quarter: 2012Q2

REPORT INFORMATION
  Report Type: 
  Country: None (occurrence: None)
  Receive Date: 20120514
  Receipt Date: 20110708
  Transmission Date: 20120825
  Serious: No
  Sender: FDA-Public Use
  Company Number: US-TEVA-2011003695

PATIENT
  Sex: Female
  Weight: 86.26 kg

DRUGS (4)
  1. NUVIGIL [Suspect]
     Indication: SLEEP APNOEA SYNDROME
     Route: 048
     Dates: start: 20100101
  2. LISINOPRIL [Concomitant]
     Dates: start: 20110101
  3. LIOTHYRONINE SODIUM [Concomitant]
     Dates: start: 20110101
  4. ZOLOFT [Concomitant]
     Dates: start: 20010101

REACTIONS (1)
  - DRUG INEFFECTIVE [None]
